FAERS Safety Report 8889951 (Version 2)
Quarter: 2012Q4

REPORT INFORMATION
  Report Type: 
  Country: US (occurrence: US)
  Receive Date: 20121107
  Receipt Date: 20121116
  Transmission Date: 20130627
  Serious: Yes (Hospitalization, Other)
  Sender: FDA-Public Use
  Company Number: US-CELGENEUS-163-21880-12110099

PATIENT
  Sex: Male

DRUGS (3)
  1. REVLIMID [Suspect]
     Indication: NODULAR LYMPHOMA
     Dosage: 15 Milligram
     Route: 048
     Dates: start: 201203
  2. REVLIMID [Suspect]
     Indication: NODULAR LYMPHOMA
     Dosage: 5 Milligram
     Route: 048
     Dates: start: 20121012
  3. REVLIMID [Suspect]
     Indication: NODULAR LYMPHOMA INVOLVING SPLEEN

REACTIONS (3)
  - Splenomegaly [Unknown]
  - Haemoglobin decreased [Unknown]
  - Dyspnoea [Unknown]
